FAERS Safety Report 11005401 (Version 2)
Quarter: 2016Q2

REPORT INFORMATION
  Report Type: Spontaneous
  Country: None (occurrence: US)
  Receive Date: 20150409
  Receipt Date: 20160415
  Transmission Date: 20160815
  Serious: No
  Sender: FDA-Public Use
  Company Number: US-ALLERGAN-1503556US

PATIENT
  Sex: Female

DRUGS (1)
  1. LUMIGAN [Suspect]
     Active Substance: BIMATOPROST
     Indication: GLAUCOMA
     Dosage: 1 GTT, QD
     Route: 047
     Dates: start: 20150105

REACTIONS (1)
  - Iris hyperpigmentation [Not Recovered/Not Resolved]
